FAERS Safety Report 10235105 (Version 1)
Quarter: 2014Q2

REPORT INFORMATION
  Report Type: Spontaneous
  Country: US (occurrence: None)
  Receive Date: 20140611
  Receipt Date: 20140611
  Transmission Date: 20141212
  Serious: Yes (Life-Threatening, Hospitalization)
  Sender: FDA-Public Use
  Company Number: SYM-2014-21790

PATIENT
  Age: 24 Year
  Sex: Female
  Weight: 1.88 kg

DRUGS (5)
  1. ACICLOVIR (ACICLOVIR) [Suspect]
     Indication: HERPES VIRUS INFECTION
  2. PIP/TAZO [Suspect]
     Indication: HERPES VIRUS INFECTION
  3. AZITHROMYCIN [Suspect]
     Indication: HERPES VIRUS INFECTION
  4. FOSCARNET SODIUM [Suspect]
     Indication: HERPES VIRUS INFECTION
  5. MISOPROSTOL [Suspect]
     Indication: LABOUR INDUCTION
     Dosage: 200 MCG, 1 IN 6 HR

REACTIONS (20)
  - Drug resistance [None]
  - Epstein-Barr virus infection [None]
  - Pyrexia [None]
  - Hypoxia [None]
  - Lung consolidation [None]
  - Hepatic failure [None]
  - Condition aggravated [None]
  - Jaundice [None]
  - Vulval ulceration [None]
  - Coagulopathy [None]
  - Pancytopenia [None]
  - Hypotension [None]
  - Acute respiratory failure [None]
  - Hepatic encephalopathy [None]
  - Herpes simplex meningoencephalitis [None]
  - Hepatitis fulminant [None]
  - Nervous system disorder [None]
  - Hypofibrinogenaemia [None]
  - Foetal death [None]
  - Postpartum haemorrhage [None]
